FAERS Safety Report 7389381-7 (Version None)
Quarter: 2011Q2

REPORT INFORMATION
  Report Type: 
  Country: None (occurrence: None)
  Receive Date: 20110401
  Receipt Date: 20110328
  Transmission Date: 20111010
  Serious: Yes (Hospitalization)
  Sender: FDA-Public Use
  Company Number: B0709715A

PATIENT
  Sex: Male
  Weight: 68 kg

DRUGS (9)
  1. ALKERAN [Suspect]
     Indication: STEM CELL TRANSPLANT
     Dosage: 160MG PER DAY
     Route: 042
     Dates: start: 20100830, end: 20100831
  2. MAGMITT [Concomitant]
     Dosage: 990MG PER DAY
     Route: 048
     Dates: start: 20100310, end: 20100907
  3. MUCOSTA [Concomitant]
     Dosage: 300MG PER DAY
     Route: 048
     Dates: start: 20100310, end: 20100907
  4. TAKEPRON [Concomitant]
     Dosage: 15MG PER DAY
     Route: 048
     Dates: start: 20100310
  5. ARGAMATE [Concomitant]
     Dosage: 50G PER DAY
     Route: 048
     Dates: start: 20100305, end: 20100907
  6. ALLOID G [Concomitant]
     Dosage: 60ML PER DAY
     Route: 048
     Dates: start: 20100317
  7. MAXIPIME [Suspect]
     Dosage: 2G PER DAY
     Route: 042
     Dates: start: 20100909, end: 20100916
  8. METHYCOBAL [Concomitant]
     Dosage: 1500MCG PER DAY
     Route: 048
     Dates: start: 20100409, end: 20100907
  9. VALTREX [Concomitant]
     Dosage: 500MG PER DAY
     Route: 048
     Dates: start: 20100415

REACTIONS (4)
  - DIARRHOEA [None]
  - FEBRILE NEUTROPENIA [None]
  - VOMITING [None]
  - NAUSEA [None]
